FAERS Safety Report 21103888 (Version 7)
Quarter: 2023Q4

REPORT INFORMATION
  Report Type: Report from Study
  Country: JP (occurrence: JP)
  Receive Date: 20220720
  Receipt Date: 20231108
  Transmission Date: 20240110
  Serious: Yes (Hospitalization, Other)
  Sender: FDA-Public Use
  Company Number: JP-ASTELLAS-2022JP004537

PATIENT
  Age: 78 Year
  Sex: Male
  Weight: 53.7 kg

DRUGS (8)
  1. ENFORTUMAB VEDOTIN [Suspect]
     Active Substance: ENFORTUMAB VEDOTIN
     Indication: Bladder cancer
     Dosage: 1.25 MG/KG (90MG), UNKNOWN FREQUENCY
     Route: 041
     Dates: start: 20220105, end: 20220225
  2. ENFORTUMAB VEDOTIN [Suspect]
     Active Substance: ENFORTUMAB VEDOTIN
     Dosage: 1.25 MG/KG (90MG), UNKNOWN FREQUENCY
     Route: 041
     Dates: start: 20220406, end: 20220420
  3. ENFORTUMAB VEDOTIN [Suspect]
     Active Substance: ENFORTUMAB VEDOTIN
     Dosage: 1.25 MG/KG (90MG), UNKNOWN FREQUENCY
     Route: 041
     Dates: start: 20220511, end: 20220525
  4. ENFORTUMAB VEDOTIN [Suspect]
     Active Substance: ENFORTUMAB VEDOTIN
     Dosage: 1.25 MG/KG (90MG), UNKNOWN FREQUENCY
     Route: 041
     Dates: start: 20220615, end: 20220622
  5. LOPERAMIDE [Concomitant]
     Active Substance: LOPERAMIDE
     Indication: Diarrhoea
     Route: 048
     Dates: start: 20220306, end: 20220413
  6. DIFLORASONE DIACETATE [Concomitant]
     Active Substance: DIFLORASONE DIACETATE
     Indication: Rash
     Dosage: ADEQUATE DOSE, ONCE DAILY
     Route: 065
     Dates: start: 20220518
  7. HEPARIN SODIUM [Concomitant]
     Active Substance: HEPARIN SODIUM
     Indication: Rash
     Dosage: ADEQUATE DOSE, ONCE DAILY
     Route: 065
     Dates: start: 20220518
  8. PREDONINE [Concomitant]
     Active Substance: PREDNISOLONE
     Indication: Product used for unknown indication
     Dosage: UNK UNK, UNKNOWN FREQ.
     Route: 065

REACTIONS (9)
  - Dementia [Not Recovered/Not Resolved]
  - Neuropathy peripheral [Not Recovered/Not Resolved]
  - Diarrhoea [Recovered/Resolved]
  - Rash [Recovered/Resolved]
  - Taste disorder [Unknown]
  - Pyrexia [Recovering/Resolving]
  - Pruritus [Unknown]
  - Product use issue [Unknown]
  - Off label use [Unknown]

NARRATIVE: CASE EVENT DATE: 20220120
